FAERS Safety Report 20597397 (Version 1)
Quarter: 2022Q1

REPORT INFORMATION
  Report Type: Report from Study
  Country: CO (occurrence: CO)
  Receive Date: 20220315
  Receipt Date: 20220315
  Transmission Date: 20220423
  Serious: Yes (Other)
  Sender: FDA-Public Use
  Company Number: CO-BRISTOL-MYERS SQUIBB COMPANY-BMS-2022-039326

PATIENT
  Age: 51 Year
  Sex: Female

DRUGS (1)
  1. ABATACEPT [Suspect]
     Active Substance: ABATACEPT
     Indication: Arthritis
     Dosage: 125 MILLIGRAM, QWK
     Route: 058
     Dates: start: 20201021

REACTIONS (2)
  - Nephrolithiasis [Unknown]
  - Intentional product use issue [Unknown]
